FAERS Safety Report 13447396 (Version 1)
Quarter: 2017Q2

REPORT INFORMATION
  Report Type: Spontaneous
  Country: US (occurrence: US)
  Receive Date: 20170416
  Receipt Date: 20170416
  Transmission Date: 20170830
  Serious: No
  Sender: FDA-Public Use
  Company Number: None

PATIENT
  Age: 49 Year
  Sex: Female
  Weight: 63 kg

DRUGS (1)
  1. TOBRAMYCIN. [Suspect]
     Active Substance: TOBRAMYCIN
     Indication: PROPHYLAXIS
     Dosage: ?          OTHER FREQUENCY:Q4H;?
     Route: 047
     Dates: start: 20170415, end: 20170416

REACTIONS (5)
  - Rash [None]
  - Pharyngeal oedema [None]
  - Headache [None]
  - Feeling cold [None]
  - Swollen tongue [None]

NARRATIVE: CASE EVENT DATE: 20170415
